FAERS Safety Report 9521784 (Version 1)
Quarter: 2013Q3

REPORT INFORMATION
  Report Type: Spontaneous
  Country: US (occurrence: None)
  Receive Date: 20130911
  Receipt Date: 20130911
  Transmission Date: 20140515
  Serious: Yes (Hospitalization)
  Sender: FDA-Public Use
  Company Number: AEUSA201300165

PATIENT
  Age: 56 Year
  Sex: Female

DRUGS (36)
  1. GAMUNEX-C [Suspect]
     Indication: HYPOGAMMAGLOBULINAEMIA
     Route: 042
  2. CALCIUM D3  /01483701/ [Concomitant]
  3. SERENTIDE [Concomitant]
  4. ASPIRIN [Concomitant]
  5. MYCOSTATIN [Concomitant]
  6. AMBIEN [Concomitant]
  7. NASONEX [Concomitant]
  8. BREATHERITE [Concomitant]
  9. MACROGOL [Concomitant]
  10. ONDANSETRON [Concomitant]
  11. ARIMIDEX [Concomitant]
  12. SINGULAIR [Concomitant]
  13. ZOCOR [Concomitant]
  14. VITAMIN D3 [Concomitant]
  15. FOLIC ACID [Concomitant]
  16. COMBIVENT [Concomitant]
  17. MELATONIN [Concomitant]
  18. AUGMENTIN /00756801/ [Concomitant]
  19. LOPRESSOR [Concomitant]
  20. MAGNESIUM [Concomitant]
  21. FUROSEMIDE [Concomitant]
  22. SALBUTAMOL [Concomitant]
  23. PROBIOTIC [Concomitant]
  24. ASPERCREME [Concomitant]
  25. DIFLUCAN [Concomitant]
  26. FERROUS SULFATE [Concomitant]
  27. CYANOCOBALAMIN [Concomitant]
  28. DIPHENHYDRAMINE HYDROCHLORIDE [Concomitant]
  29. BACTRIM DS [Concomitant]
  30. DILAUDID [Concomitant]
  31. PREDNISONE [Concomitant]
  32. DIPHENHYDRAMINE HYDROCHLORIDE [Concomitant]
  33. ESOMEPRAZOLE MAGNESIUM [Concomitant]
  34. POLYVIDONE [Concomitant]
  35. FLUTICASONE [Concomitant]
  36. GAMUNEX [Concomitant]

REACTIONS (1)
  - Meningitis aseptic [None]
